FAERS Safety Report 8545276 (Version 3)
Quarter: 2013Q2

REPORT INFORMATION
  Report Type: Spontaneous
  Country: US (occurrence: US)
  Receive Date: 20120503
  Receipt Date: 20130529
  Transmission Date: 20140414
  Serious: No
  Sender: FDA-Public Use
  Company Number: US-PFIZER INC-2012106821

PATIENT
  Age: 48 Year
  Sex: Male

DRUGS (2)
  1. CELEBREX [Suspect]
     Indication: RHEUMATOID ARTHRITIS
     Dosage: UNK, 1X/DAY
  2. LYRICA [Suspect]
     Indication: RHEUMATOID ARTHRITIS
     Dosage: UNK, 1X/DAY

REACTIONS (3)
  - Off label use [Unknown]
  - Movement disorder [Unknown]
  - Arthralgia [Unknown]
